FAERS Safety Report 4307609-4 (Version None)
Quarter: 2004Q1

REPORT INFORMATION
  Report Type: 
  Country: None (occurrence: None)
  Receive Date: 20040227
  Receipt Date: 20040227
  Transmission Date: 20041129
  Serious: Yes (Hospitalization)
  Sender: FDA-Public Use
  Company Number: None

PATIENT
  Sex: Male

DRUGS (2)
  1. GEMCITABINE [Suspect]
     Indication: METASTATIC NEOPLASM
     Dosage: 1200 MG/M2
     Dates: start: 20040217, end: 20040224
  2. IRINOTECAN [Suspect]
     Indication: METASTATIC NEOPLASM
     Dosage: 100MG/M2
     Dates: start: 20040217, end: 20040224

REACTIONS (3)
  - BODY TEMPERATURE INCREASED [None]
  - CHROMATURIA [None]
  - DEHYDRATION [None]
